FAERS Safety Report 9783073 (Version 2)
Quarter: 2014Q1

REPORT INFORMATION
  Report Type: Report from Study
  Country: CA (occurrence: CA)
  Receive Date: 20131226
  Receipt Date: 20140218
  Transmission Date: 20141002
  Serious: Yes (Other)
  Sender: FDA-Public Use
  Company Number: CA-JNJFOC-20131212608

PATIENT
  Sex: Male
  Weight: 71 kg

DRUGS (3)
  1. REMICADE [Suspect]
     Indication: PYODERMA GANGRENOSUM
     Route: 042
     Dates: start: 20080502
  2. REMICADE [Suspect]
     Indication: CROHN^S DISEASE
     Route: 042
     Dates: start: 20080502
  3. IMURAN [Concomitant]
     Route: 065

REACTIONS (1)
  - Nodule [Not Recovered/Not Resolved]
